FAERS Safety Report 5923930-8 (Version None)
Quarter: 2008Q4

REPORT INFORMATION
  Report Type: 
  Country: None (occurrence: None)
  Receive Date: 20081020
  Receipt Date: 20081008
  Transmission Date: 20090506
  Serious: Yes (Death)
  Sender: FDA-Public Use
  Company Number: GB-TEVA-178704ISR

PATIENT
  Age: 89 Year
  Sex: Male

DRUGS (1)
  1. FLUDARABINE PHOSPHATE [Suspect]
     Indication: CHRONIC LYMPHOCYTIC LEUKAEMIA

REACTIONS (4)
  - DRUG INEFFECTIVE [None]
  - GRANULAR CELL TUMOUR [None]
  - METASTASES TO LUNG [None]
  - SKIN CANCER [None]
